FAERS Safety Report 16669668 (Version 2)
Quarter: 2019Q3

REPORT INFORMATION
  Report Type: Spontaneous
  Country: NL (occurrence: NL)
  Receive Date: 20190805
  Receipt Date: 20190812
  Transmission Date: 20191004
  Serious: Yes (Other)
  Sender: FDA-Public Use
  Company Number: NL-MYLANLABS-2019M1070368

PATIENT
  Age: 67 Year
  Sex: Female

DRUGS (3)
  1. METFORMINE HYDROCHLORIDE MYLAN 500 MG, FILMOMHULDE TABLETTEN [Suspect]
     Active Substance: METFORMIN HYDROCHLORIDE
     Indication: DIABETES MELLITUS
     Dosage: 1-2, BID
     Route: 048
     Dates: start: 201811
  2. PARACETAMOL [Concomitant]
     Active Substance: ACETAMINOPHEN
     Dosage: UNK, PRN
  3. INSULIN [Concomitant]
     Active Substance: INSULIN NOS
     Dosage: UNK UNK, QD (IN THE EVENING),4 STRIPES
     Dates: start: 2017

REACTIONS (14)
  - Memory impairment [Not Recovered/Not Resolved]
  - Fall [Not Recovered/Not Resolved]
  - Psychiatric symptom [Not Recovered/Not Resolved]
  - Arthropathy [Unknown]
  - Suicidal ideation [Not Recovered/Not Resolved]
  - Depression [Not Recovered/Not Resolved]
  - Disturbance in attention [Not Recovered/Not Resolved]
  - Fatigue [Unknown]
  - Dizziness [Not Recovered/Not Resolved]
  - Balance disorder [Not Recovered/Not Resolved]
  - Feeling abnormal [Not Recovered/Not Resolved]
  - Musculoskeletal stiffness [Not Recovered/Not Resolved]
  - Fluid retention [Unknown]
  - Visual impairment [Not Recovered/Not Resolved]
